FAERS Safety Report 4448114-4 (Version None)
Quarter: 2004Q3

REPORT INFORMATION
  Report Type: 
  Country: None (occurrence: None)
  Receive Date: 20040812
  Receipt Date: 20040609
  Transmission Date: 20050211
  Serious: No
  Sender: FDA-Public Use
  Company Number: USA040669527

PATIENT
  Age: 59 Year
  Sex: Male
  Weight: 77 kg

DRUGS (3)
  1. CIALIS [Suspect]
     Indication: ERECTILE DYSFUNCTION
     Dosage: 10 MG/1 EVERY OTHER DAY
     Dates: start: 20040601
  2. ZOCOR [Concomitant]
  3. TRICOR [Concomitant]

REACTIONS (3)
  - BALANCE DISORDER [None]
  - DIZZINESS [None]
  - VERTIGO [None]
